FAERS Safety Report 7690313-2 (Version None)
Quarter: 2011Q3

REPORT INFORMATION
  Report Type: 
  Country: None (occurrence: None)
  Receive Date: 20110817
  Receipt Date: 20110817
  Transmission Date: 20111222
  Serious: Yes (Hospitalization)
  Sender: FDA-Public Use
  Company Number: None

PATIENT
  Age: 84 Year
  Sex: Male
  Weight: 129 kg

DRUGS (9)
  1. DIGOXIN [Suspect]
     Dosage: 0.25MG EVERY 6  HOURS IV
     Route: 042
     Dates: start: 20110524
  2. DIGOXIN [Suspect]
     Dosage: 0.25MG DAILY IV
     Route: 042
     Dates: start: 20110525, end: 20110605
  3. PRADAXA [Concomitant]
  4. CEFTRIAXONE [Concomitant]
  5. DOBUTAMINE HCL [Concomitant]
  6. LEVOPHED [Concomitant]
  7. MELOXICAM [Concomitant]
  8. AMIODARONE HCL [Concomitant]
  9. PRECEDEX [Concomitant]

REACTIONS (2)
  - VENTRICULAR TACHYCARDIA [None]
  - VENTRICULAR FIBRILLATION [None]
